FAERS Safety Report 8202173-1 (Version None)
Quarter: 2012Q1

REPORT INFORMATION
  Report Type: 
  Country: None (occurrence: None)
  Receive Date: 20120312
  Receipt Date: 20120302
  Transmission Date: 20120608
  Serious: Yes (Hospitalization, Other)
  Sender: FDA-Public Use
  Company Number: US-BAYER-2011-091219

PATIENT
  Age: 42 Year
  Sex: Female
  Weight: 79.365 kg

DRUGS (5)
  1. TAMIFLU [Concomitant]
  2. ZOLOFT [Concomitant]
  3. YAZ [Suspect]
     Indication: CONTRACEPTION
     Dosage: UNK
     Dates: start: 20090129, end: 20090927
  4. YAZ [Suspect]
     Indication: PREMENSTRUAL SYNDROME
  5. YAZ [Suspect]
     Indication: MENSTRUAL CYCLE MANAGEMENT

REACTIONS (7)
  - PULMONARY EMBOLISM [None]
  - INJURY [None]
  - PAIN [None]
  - DEEP VEIN THROMBOSIS [None]
  - PAIN IN EXTREMITY [None]
  - DYSPNOEA [None]
  - OEDEMA PERIPHERAL [None]
